FAERS Safety Report 8979277 (Version 1)
Quarter: 2012Q4

REPORT INFORMATION
  Report Type: 
  Country: US (occurrence: US)
  Receive Date: 20121221
  Receipt Date: 20121221
  Transmission Date: 20130627
  Serious: No
  Sender: FDA-Public Use
  Company Number: US-BAYER-2012-133777

PATIENT
  Age: 83 Year
  Sex: Male
  Weight: 68.03 kg

DRUGS (3)
  1. ALEVE CAPLET/TABLET,MIDOL EXTENDED RELIEF CAPLET [Suspect]
     Indication: ARTHRITIS
     Dosage: 2 DF, QD with food
     Route: 048
     Dates: start: 2010
  2. LISINOPRIL [Concomitant]
  3. SIMVASTATIN [Concomitant]

REACTIONS (2)
  - Therapeutic response unexpected [None]
  - Incorrect drug administration duration [None]
